FAERS Safety Report 10509947 (Version 1)
Quarter: 2014Q4

REPORT INFORMATION
  Report Type: Spontaneous
  Country: US (occurrence: None)
  Receive Date: 20141009
  Receipt Date: 20141009
  Transmission Date: 20150528
  Serious: Yes (Death, Life-Threatening)
  Sender: FDA-Public Use
  Company Number: None

PATIENT
  Age: 79 Year
  Sex: Male
  Weight: 61.1 kg

DRUGS (2)
  1. WARFARIN [Suspect]
     Active Substance: WARFARIN
     Indication: ATRIAL FIBRILLATION
     Dosage: MG PO
     Route: 048
     Dates: start: 20140429, end: 20140724
  2. WARFARIN [Suspect]
     Active Substance: WARFARIN
     Dosage: MG PO
     Route: 048
     Dates: start: 20140429, end: 20140724

REACTIONS (21)
  - Contusion [None]
  - Dizziness [None]
  - Anaemia [None]
  - International normalised ratio increased [None]
  - Hypotension [None]
  - Shock haemorrhagic [None]
  - Upper gastrointestinal haemorrhage [None]
  - Gastric haemorrhage [None]
  - Back pain [None]
  - Haematoma [None]
  - Fatigue [None]
  - Refusal of treatment by patient [None]
  - Loss of consciousness [None]
  - Pulseless electrical activity [None]
  - Peritoneal haemorrhage [None]
  - Fall [None]
  - Hyperhidrosis [None]
  - Lumbar vertebral fracture [None]
  - Cardiac arrest [None]
  - Cerebrovascular accident [None]
  - Road traffic accident [None]

NARRATIVE: CASE EVENT DATE: 20140728
